FAERS Safety Report 13145041 (Version 2)
Quarter: 2017Q1

REPORT INFORMATION
  Report Type: Report from Study
  Country: US (occurrence: US)
  Receive Date: 20170124
  Receipt Date: 20170202
  Transmission Date: 20170428
  Serious: Yes (Hospitalization, Other)
  Sender: FDA-Public Use
  Company Number: PHEH2017US001705

PATIENT
  Sex: Female
  Weight: 95.7 kg

DRUGS (35)
  1. AFINITOR [Suspect]
     Active Substance: EVEROLIMUS
     Dosage: 5 MG, QD
     Route: 065
  2. BENZONATATE. [Concomitant]
     Active Substance: BENZONATATE
     Indication: PRODUCT USED FOR UNKNOWN INDICATION
     Dosage: 100 MG, TID
     Route: 048
  3. FLUOXETINE [Concomitant]
     Active Substance: FLUOXETINE HYDROCHLORIDE
     Indication: PRODUCT USED FOR UNKNOWN INDICATION
     Dosage: 1 DF, QD
     Route: 048
  4. CHOLECALCIFEROL [Concomitant]
     Active Substance: CHOLECALCIFEROL
     Indication: VULVAL CANCER
  5. GLUCAGON. [Concomitant]
     Active Substance: GLUCAGON
     Indication: HYPOGLYCAEMIC UNCONSCIOUSNESS
     Route: 065
  6. INSULIN GLARGINE [Concomitant]
     Active Substance: INSULIN GLARGINE
     Indication: PRODUCT USED FOR UNKNOWN INDICATION
     Dosage: 10 UNIT/ML, UNK
     Route: 065
  7. LASIX [Concomitant]
     Active Substance: FUROSEMIDE
     Indication: PRODUCT USED FOR UNKNOWN INDICATION
     Route: 065
  8. DOCUSATE SODIUM. [Concomitant]
     Active Substance: DOCUSATE SODIUM
     Indication: PRODUCT USED FOR UNKNOWN INDICATION
     Dosage: 100 MG, BID
     Route: 048
  9. ATORVASTATIN [Concomitant]
     Active Substance: ATORVASTATIN
     Indication: PRODUCT USED FOR UNKNOWN INDICATION
     Dosage: 40 MG, QD
     Route: 048
  10. BUDESONIDE. [Concomitant]
     Active Substance: BUDESONIDE
     Indication: PRODUCT USED FOR UNKNOWN INDICATION
     Dosage: 2 DF, BID
     Route: 055
  11. PRAMIPEXOLE. [Concomitant]
     Active Substance: PRAMIPEXOLE
     Indication: PRODUCT USED FOR UNKNOWN INDICATION
     Dosage: 0.125 MG, QD
     Route: 048
  12. OMEGA-3 FATTY ACIDS [Concomitant]
     Active Substance: OMEGA-3 FATTY ACIDS
     Indication: PRODUCT USED FOR UNKNOWN INDICATION
     Dosage: 1200 MG, QD
     Route: 048
  13. CHOLECALCIFEROL [Concomitant]
     Active Substance: CHOLECALCIFEROL
     Indication: LUNG NEOPLASM MALIGNANT
  14. WARFARIN [Concomitant]
     Active Substance: WARFARIN
     Indication: PRODUCT USED FOR UNKNOWN INDICATION
     Dosage: 1 DF, UNK
     Route: 048
  15. METOPROLOL TARTRATE. [Concomitant]
     Active Substance: METOPROLOL TARTRATE
     Dosage: 25 MG, QID
  16. TIOTROPIUM BROMIDE MONOHYDRATE [Concomitant]
     Active Substance: TIOTROPIUM BROMIDE MONOHYDRATE
     Indication: PRODUCT USED FOR UNKNOWN INDICATION
     Dosage: 2 DF, QD
     Route: 055
  17. ASPIRIN. [Concomitant]
     Active Substance: ASPIRIN
     Indication: RENAL CELL CARCINOMA
     Dosage: 81 MG, QD
     Route: 048
  18. ASPIRIN. [Concomitant]
     Active Substance: ASPIRIN
     Indication: VULVAL CANCER
  19. OMEPRAZOLE. [Concomitant]
     Active Substance: OMEPRAZOLE
     Indication: VULVAL CANCER
  20. ALLOPURINOL. [Concomitant]
     Active Substance: ALLOPURINOL
     Indication: RENAL CELL CARCINOMA
     Dosage: 2 DF, QD
     Route: 048
  21. ALLOPURINOL. [Concomitant]
     Active Substance: ALLOPURINOL
     Indication: LUNG NEOPLASM MALIGNANT
  22. ASPIRIN. [Concomitant]
     Active Substance: ASPIRIN
     Indication: LUNG NEOPLASM MALIGNANT
  23. OMEPRAZOLE. [Concomitant]
     Active Substance: OMEPRAZOLE
     Indication: RENAL CELL CARCINOMA
     Dosage: 1 DF, QD
     Route: 048
  24. MIDODRINE HCL [Concomitant]
     Active Substance: MIDODRINE HYDROCHLORIDE
     Indication: PRODUCT USED FOR UNKNOWN INDICATION
     Dosage: 10 MG, TID
     Route: 048
  25. POTASSIUM CHLORIDE. [Concomitant]
     Active Substance: POTASSIUM CHLORIDE
     Indication: PRODUCT USED FOR UNKNOWN INDICATION
     Dosage: 60 MEQ, QD
     Route: 048
  26. AFINITOR [Suspect]
     Active Substance: EVEROLIMUS
     Indication: RENAL CELL CARCINOMA
     Dosage: 5 MG, QD
     Route: 048
  27. FUROSEMIDE. [Concomitant]
     Active Substance: FUROSEMIDE
     Indication: PRODUCT USED FOR UNKNOWN INDICATION
     Dosage: 1 DF, BID
     Route: 048
  28. ALBUTEROL. [Concomitant]
     Active Substance: ALBUTEROL
     Indication: WHEEZING
     Dosage: 1 DF, UNK
     Route: 065
  29. INSULIN ASPART [Concomitant]
     Active Substance: INSULIN ASPART
     Indication: PRODUCT USED FOR UNKNOWN INDICATION
     Dosage: 41 OT, QD (1.8 UNITS/HR, 1.6 UNITS/HR, 1.9 UNITS/ HR)
     Route: 065
  30. METOPROLOL TARTRATE. [Concomitant]
     Active Substance: METOPROLOL TARTRATE
     Indication: PRODUCT USED FOR UNKNOWN INDICATION
     Dosage: 37.5 MG, BID
     Route: 048
  31. CHOLECALCIFEROL [Concomitant]
     Active Substance: CHOLECALCIFEROL
     Indication: RENAL CELL CARCINOMA
     Dosage: 1 DF, QD
     Route: 048
  32. COUMADIN [Concomitant]
     Active Substance: WARFARIN SODIUM
     Indication: PRODUCT USED FOR UNKNOWN INDICATION
     Dosage: 7.5 MG, QD
     Route: 065
  33. DIGOXIN. [Concomitant]
     Active Substance: DIGOXIN
     Indication: ATRIAL FIBRILLATION
     Dosage: 0.062 MG, Q48H
     Route: 048
  34. ALLOPURINOL. [Concomitant]
     Active Substance: ALLOPURINOL
     Indication: VULVAL CANCER
  35. OMEPRAZOLE. [Concomitant]
     Active Substance: OMEPRAZOLE
     Indication: LUNG NEOPLASM MALIGNANT

REACTIONS (27)
  - Dyspnoea [Recovering/Resolving]
  - Fatigue [Unknown]
  - Cardiomegaly [Unknown]
  - Faeces discoloured [Unknown]
  - Osteoarthritis [Unknown]
  - Pleural effusion [Unknown]
  - Haemoglobin decreased [Unknown]
  - Ventricular tachycardia [Unknown]
  - Feeling abnormal [Unknown]
  - Polyuria [Unknown]
  - Thrombocytopenia [Unknown]
  - Peripheral swelling [Unknown]
  - Anaemia [Unknown]
  - Asthenia [Unknown]
  - Pneumonitis [Unknown]
  - Renal impairment [Unknown]
  - Pulmonary artery dilatation [Unknown]
  - Pneumonia [Unknown]
  - Left ventricular hypertrophy [Unknown]
  - Arrhythmia [Unknown]
  - Lung disorder [Unknown]
  - Chills [Unknown]
  - Chest pain [Unknown]
  - Cardiac failure [Unknown]
  - Pulmonary embolism [Unknown]
  - Pulmonary oedema [Unknown]
  - Dizziness [Unknown]
